FAERS Safety Report 7897550-2 (Version None)
Quarter: 2011Q4

REPORT INFORMATION
  Report Type: 
  Country: None (occurrence: None)
  Receive Date: 20111107
  Receipt Date: 20111031
  Transmission Date: 20120403
  Serious: Yes (Hospitalization)
  Sender: FDA-Public Use
  Company Number: US-JNJFOC-20110601783

PATIENT
  Sex: Female

DRUGS (10)
  1. LEVAQUIN [Suspect]
     Indication: KIDNEY INFECTION
     Route: 042
  2. LEVAQUIN [Suspect]
     Route: 048
  3. SOLU-MEDROL [Suspect]
     Indication: PRODUCT USED FOR UNKNOWN INDICATION
     Route: 065
  4. PHENAZOPYRIDINE HCL TAB [Suspect]
     Indication: DYSURIA
     Route: 048
  5. PHENERGAN HCL [Suspect]
     Indication: NAUSEA
     Route: 048
  6. LEVAQUIN [Suspect]
     Indication: URINARY TRACT INFECTION
     Route: 048
  7. ALL OTHER NON-THERAPEUTIC PRODUCTS [Suspect]
     Indication: PRODUCT USED FOR UNKNOWN INDICATION
     Route: 065
  8. CIPROFLOXACIN [Suspect]
     Indication: PRODUCT USED FOR UNKNOWN INDICATION
     Route: 065
  9. ASPIRIN [Suspect]
     Indication: PRODUCT USED FOR UNKNOWN INDICATION
     Route: 065
  10. PHENAZOPYRIDINE HCL TAB [Suspect]
     Indication: URINARY TRACT INFECTION
     Route: 048

REACTIONS (3)
  - DIABETES MELLITUS [None]
  - STEVENS-JOHNSON SYNDROME [None]
  - DEPRESSION [None]
